FAERS Safety Report 9856234 (Version 1)
Quarter: 2014Q1

REPORT INFORMATION
  Report Type: Spontaneous
  Country: US (occurrence: US)
  Receive Date: 20140130
  Receipt Date: 20140130
  Transmission Date: 20141002
  Serious: Yes (Hospitalization, Other)
  Sender: FDA-Public Use
  Company Number: US-PFIZER INC-2014025969

PATIENT
  Age: 40 Year
  Sex: Female
  Weight: 68.03 kg

DRUGS (4)
  1. LYRICA [Suspect]
     Indication: NERVOUS SYSTEM DISORDER
     Dosage: 150 MG, 2X/DAY
     Route: 048
     Dates: start: 20131214, end: 20140114
  2. LORTAB [Concomitant]
     Indication: PAIN
     Dosage: HYDROCODONE BITARTRATE 7.5MG/ACETAMINOPHEN500 MG, 3X/DAY
  3. CELEBREX [Concomitant]
     Indication: ARTHRITIS
     Dosage: 200 MG, DAILY
  4. COPPER [Concomitant]
     Indication: COPPER DEFICIENCY
     Dosage: UNK, 2X/DAY

REACTIONS (6)
  - Off label use [Unknown]
  - Nervous system disorder [Unknown]
  - Gastric ulcer [Unknown]
  - Anaemia [Unknown]
  - Blood count abnormal [Unknown]
  - Blood copper abnormal [Unknown]
